FAERS Safety Report 7338838-3 (Version None)
Quarter: 2011Q1

REPORT INFORMATION
  Report Type: 
  Country: None (occurrence: None)
  Receive Date: 20110303
  Receipt Date: 20110303
  Transmission Date: 20110831
  Serious: Yes (Death, Life-Threatening)
  Sender: FDA-Public Use
  Company Number: None

PATIENT
  Sex: Female
  Weight: 113.3 kg

DRUGS (11)
  1. PROFILNINE SD [Suspect]
     Indication: HAEMATOMA
     Dosage: 1780 UNITS ONCE IV
     Route: 042
     Dates: start: 20101221, end: 20101221
  2. PROFILNINE SD [Suspect]
     Indication: INTERNATIONAL NORMALISED RATIO
     Dosage: 1780 UNITS ONCE IV
     Route: 042
     Dates: start: 20101221, end: 20101221
  3. WARFARIN SODIUM [Concomitant]
  4. PROFILNINE SD [Suspect]
     Indication: HAEMATOMA
     Dosage: 540 UNITS ONCE IV
     Route: 042
     Dates: start: 20101221, end: 20101221
  5. PROFILNINE SD [Suspect]
     Indication: INTERNATIONAL NORMALISED RATIO
     Dosage: 540 UNITS ONCE IV
     Route: 042
     Dates: start: 20101221, end: 20101221
  6. HYDROCHLOROTHIAZIDE [Concomitant]
  7. RISPERDAL [Concomitant]
  8. BENZTROPINE MESYLATE [Concomitant]
  9. ZOCOR [Concomitant]
  10. CELEXA [Concomitant]
  11. WELLBUTRIN [Concomitant]

REACTIONS (14)
  - COAGULOPATHY [None]
  - SHOCK HAEMORRHAGIC [None]
  - DEPRESSED LEVEL OF CONSCIOUSNESS [None]
  - INTERNATIONAL NORMALISED RATIO INCREASED [None]
  - ANAEMIA [None]
  - CARDIAC ARREST [None]
  - CONTUSION [None]
  - INTRACARDIAC THROMBUS [None]
  - PULSE ABSENT [None]
  - HAEMATOMA [None]
  - ECCHYMOSIS [None]
  - FALL [None]
  - HAEMORRHAGE [None]
  - PULSELESS ELECTRICAL ACTIVITY [None]
